FAERS Safety Report 7549160-4 (Version None)
Quarter: 2011Q2

REPORT INFORMATION
  Report Type: 
  Country: None (occurrence: None)
  Receive Date: 20110615
  Receipt Date: 20110601
  Transmission Date: 20111010
  Serious: Yes (Other)
  Sender: FDA-Public Use
  Company Number: PHHY2011SI48583

PATIENT
  Age: 36 Year
  Sex: Male

DRUGS (4)
  1. CLOZAPINE [Suspect]
     Dosage: 500 MG, UNK
  2. ESCITALOPRAM [Concomitant]
     Dosage: 300 MG, BID
  3. SOLIAN [Concomitant]
     Dosage: 20 MG, UNK
  4. CLOZAPINE [Suspect]
     Indication: SCHIZOPHRENIA
     Dosage: 250 MG, DAILY

REACTIONS (4)
  - OVERDOSE [None]
  - DISABILITY [None]
  - AGGRESSION [None]
  - HYPOKINESIA [None]
